FAERS Safety Report 18079501 (Version 2)
Quarter: 2020Q3

REPORT INFORMATION
  Report Type: Spontaneous
  Country: IT (occurrence: IT)
  Receive Date: 20200728
  Receipt Date: 20200731
  Transmission Date: 20201103
  Serious: Yes (Other)
  Sender: FDA-Public Use
  Company Number: IT-MYLANLABS-2020M1062167

PATIENT
  Age: 38 Year
  Sex: Female

DRUGS (7)
  1. CIPROFLOXACIN. [Suspect]
     Active Substance: CIPROFLOXACIN
     Indication: PROTEUS INFECTION
     Dosage: 2 DAYS FOR 6 DAYS
  2. COTRIMOXAZOLE [Suspect]
     Active Substance: SULFAMETHOXAZOLE\TRIMETHOPRIM
     Indication: PROTEUS INFECTION
     Dosage: 160 + 800 MG 2/DAY FOR 8 DAYS
  3. COTRIMOXAZOLE [Suspect]
     Active Substance: SULFAMETHOXAZOLE\TRIMETHOPRIM
     Indication: ESCHERICHIA INFECTION
     Dosage: 160 + 800 MG 2/DAY FOR 8 DAYS
  4. COTRIMOXAZOLE [Suspect]
     Active Substance: SULFAMETHOXAZOLE\TRIMETHOPRIM
     Indication: VULVOVAGINAL CANDIDIASIS
     Dosage: 2 DOSAGES 1 DF
  5. CIPROFLOXACIN. [Suspect]
     Active Substance: CIPROFLOXACIN
     Indication: ESCHERICHIA INFECTION
     Dosage: 2 DAYS FOR 6 DAYS
  6. CIPROFLOXACIN. [Suspect]
     Active Substance: CIPROFLOXACIN
     Indication: CYSTITIS HAEMORRHAGIC
  7. CIPROFLOXACIN. [Suspect]
     Active Substance: CIPROFLOXACIN
     Indication: VULVOVAGINAL CANDIDIASIS
     Dosage: 500 MILLIGRAM, BID (2 TIMES A DAY FOR 6 DAYS)
     Route: 048

REACTIONS (8)
  - Condition aggravated [Recovering/Resolving]
  - Adverse drug reaction [Unknown]
  - Drug ineffective [Recovered/Resolved]
  - Vulvovaginal candidiasis [Recovering/Resolving]
  - Escherichia infection [Recovered/Resolved]
  - Proteus infection [Recovered/Resolved]
  - Candida infection [Recovered/Resolved]
  - Photosensitivity reaction [Recovering/Resolving]
